FAERS Safety Report 15157977 (Version 2)
Quarter: 2018Q3

REPORT INFORMATION
  Report Type: Spontaneous
  Country: US (occurrence: US)
  Receive Date: 20180718
  Receipt Date: 20180820
  Transmission Date: 20181010
  Serious: No
  Sender: FDA-Public Use
  Company Number: US-ROCHE-2154889

PATIENT
  Sex: Female

DRUGS (2)
  1. RITUXAN [Suspect]
     Active Substance: RITUXIMAB
     Indication: RHEUMATOID ARTHRITIS
     Dosage: TOTAL OF 2 DOSES (LOADING DOSE) ;ONGOING: NO
     Route: 042
     Dates: start: 2010, end: 2010
  2. RITUXAN [Suspect]
     Active Substance: RITUXIMAB
     Dosage: EACH DOSE IS SPLIT AS 1000MG EVERY 2 WEEKS
     Route: 042
     Dates: start: 201702

REACTIONS (1)
  - Drug effect decreased [Unknown]
